FAERS Safety Report 6619934-2 (Version None)
Quarter: 2010Q1

REPORT INFORMATION
  Report Type: 
  Country: None (occurrence: None)
  Receive Date: 20100309
  Receipt Date: 20100301
  Transmission Date: 20100710
  Serious: Yes (Other)
  Sender: FDA-Public Use
  Company Number: US-ASTRAZENECA-2010SE05366

PATIENT
  Age: 775 Month
  Sex: Female
  Weight: 81.6 kg

DRUGS (2)
  1. CRESTOR [Suspect]
     Indication: BLOOD CHOLESTEROL INCREASED
     Route: 048
     Dates: start: 20091201
  2. PAMELOR [Interacting]
     Indication: DEPRESSION

REACTIONS (5)
  - DEPRESSION [None]
  - DEPRESSION SUICIDAL [None]
  - DIZZINESS [None]
  - FATIGUE [None]
  - INHIBITORY DRUG INTERACTION [None]
